FAERS Safety Report 20484183 (Version 1)
Quarter: 2022Q1

REPORT INFORMATION
  Report Type: Spontaneous
  Country: IT (occurrence: IT)
  Receive Date: 20220217
  Receipt Date: 20220217
  Transmission Date: 20220423
  Serious: No
  Sender: FDA-Public Use
  Company Number: IT-LUPIN PHARMACEUTICALS INC.-2022-02072

PATIENT
  Age: 43 Year
  Sex: Female

DRUGS (3)
  1. CETIRIZINE [Suspect]
     Active Substance: CETIRIZINE HYDROCHLORIDE
     Indication: Filariasis
     Dosage: 10 MG, QD
     Route: 065
     Dates: start: 201505
  2. ALBENDAZOLE [Suspect]
     Active Substance: ALBENDAZOLE
     Indication: Filariasis
     Dosage: 800 MG, QD
     Route: 065
     Dates: start: 201505
  3. IVERMECTIN [Suspect]
     Active Substance: IVERMECTIN
     Indication: Filariasis
     Dosage: 200 MICROGRAM/KILOGRAM, WEEKLY
     Route: 065
     Dates: start: 201505

REACTIONS (2)
  - Pruritus allergic [Unknown]
  - Off label use [Unknown]

NARRATIVE: CASE EVENT DATE: 20150101
